FAERS Safety Report 4814498-8 (Version None)
Quarter: 2005Q4

REPORT INFORMATION
  Report Type: 
  Country: None (occurrence: None)
  Receive Date: 20051028
  Receipt Date: 20050929
  Transmission Date: 20060501
  Serious: Yes (Hospitalization, Other)
  Sender: FDA-Public Use
  Company Number: US-MERCK-0509USA04728

PATIENT
  Age: 59 Year
  Sex: Male

DRUGS (7)
  1. VIOXX [Suspect]
     Indication: RHEUMATOID ARTHRITIS
     Route: 048
     Dates: start: 20010901, end: 20031103
  2. ZOCOR [Concomitant]
     Route: 065
  3. NORVASC [Concomitant]
     Route: 065
     Dates: start: 20020501
  4. CELEBREX [Concomitant]
     Route: 065
     Dates: start: 19990101, end: 20020101
  5. [THERAPY UNSPECIFIED] [Concomitant]
     Route: 065
     Dates: start: 20020801
  6. ARAVA [Concomitant]
     Route: 065
     Dates: start: 20020101
  7. FOSAMAX [Concomitant]
     Route: 065
     Dates: start: 20030101

REACTIONS (2)
  - MYOCARDIAL INFARCTION [None]
  - PULMONARY EMBOLISM [None]
